FAERS Safety Report 9249177 (Version 1)
Quarter: 2013Q2

REPORT INFORMATION
  Report Type: Spontaneous
  Country: US (occurrence: US)
  Receive Date: 20130423
  Receipt Date: 20130423
  Transmission Date: 20140414
  Serious: No
  Sender: FDA-Public Use
  Company Number: US-BAYER-2013-050014

PATIENT
  Age: 82 Year
  Sex: Female
  Weight: 62.59 kg

DRUGS (3)
  1. ALEVE CAPLET [Suspect]
     Indication: ARTHRITIS
     Dosage: 2 DF, BID
     Route: 048
     Dates: start: 20130409, end: 20130413
  2. HYDROCHLOROTHIAZIDE [Concomitant]
  3. AMLODIPINE [Concomitant]

REACTIONS (5)
  - Urticaria [Recovered/Resolved]
  - Oedema mouth [Recovered/Resolved]
  - Swelling face [Recovered/Resolved]
  - Lip swelling [Recovered/Resolved]
  - Incorrect dose administered [None]
